FAERS Safety Report 10244693 (Version 1)
Quarter: 2014Q2

REPORT INFORMATION
  Report Type: Report from Study
  Country: US (occurrence: US)
  Receive Date: 20140618
  Receipt Date: 20140618
  Transmission Date: 20141212
  Serious: Yes (Hospitalization)
  Sender: FDA-Public Use
  Company Number: US-BRISTOL-MYERS SQUIBB COMPANY-20963468

PATIENT
  Age: 51 Year
  Sex: Female

DRUGS (5)
  1. PACLITAXEL [Suspect]
     Indication: BREAST CANCER
     Dosage: FREGUENCY:OVER 1 HR ON DAY 1 OF WKS 1-12
     Route: 042
     Dates: start: 20110610
  2. BEVACIZUMAB [Suspect]
     Indication: BREAST CANCER
     Dosage: FREQ: 10MG/KG OVER 30-90MIN ON DAY 1 OF WKS 1,3,5,7,9,11,13,15,17
     Route: 042
     Dates: start: 20110610
  3. DOXORUBICIN HCL [Suspect]
     Indication: BREAST CANCER
     Dosage: FREQ: OVER 5-10MIN ON DAY 1 OF WKS13,15,17,19
     Route: 042
     Dates: start: 20110610
  4. CYCLOPHOSPHAMIDE [Suspect]
     Indication: BREAST CANCER
     Dosage: FREQ: OVER 5-30MIN ON DAY 1 OF WKS13,15,17,19
     Route: 042
     Dates: start: 20110610
  5. PEGFILGRASTIM [Concomitant]
     Dates: start: 20110917

REACTIONS (1)
  - Lung infection [Recovering/Resolving]
